FAERS Safety Report 8090440-4 (Version None)
Quarter: 2012Q1

REPORT INFORMATION
  Report Type: 
  Country: None (occurrence: None)
  Receive Date: 20120129
  Receipt Date: 20111201
  Transmission Date: 20120608
  Serious: No
  Sender: FDA-Public Use
  Company Number: US-ABBOTT-11P-163-0879948-00

PATIENT
  Sex: Female
  Weight: 81.72 kg

DRUGS (9)
  1. HUMIRA [Suspect]
     Indication: CROHN'S DISEASE
     Dates: start: 20090401
  2. PENTASSA [Concomitant]
     Indication: CROHN'S DISEASE
  3. LASIX [Concomitant]
     Indication: HYPERTENSION
  4. MERCAPTOPURINE [Concomitant]
     Indication: CROHN'S DISEASE
  5. ZOLOFT [Concomitant]
     Indication: PRODUCT USED FOR UNKNOWN INDICATION
  6. HYDROXYZINE HCL [Concomitant]
     Indication: PRODUCT USED FOR UNKNOWN INDICATION
  7. PREVACID [Concomitant]
     Indication: PRODUCT USED FOR UNKNOWN INDICATION
  8. HYDROCHLOROTHIAZIDE [Concomitant]
     Indication: HIDRADENITIS
  9. PHENERGAN [Concomitant]
     Indication: NAUSEA

REACTIONS (3)
  - INCORRECT DOSE ADMINISTERED [None]
  - DEVICE MALFUNCTION [None]
  - INJECTION SITE SWELLING [None]
